FAERS Safety Report 16541788 (Version 5)
Quarter: 2019Q4

REPORT INFORMATION
  Report Type: Report from Study
  Country: US (occurrence: US)
  Receive Date: 20190708
  Receipt Date: 20191107
  Transmission Date: 20200122
  Serious: Yes (Hospitalization, Other)
  Sender: FDA-Public Use
  Company Number: US-ACTELION-A-NJ2019-192271

PATIENT
  Age: 31 Year
  Sex: Male

DRUGS (7)
  1. OPSUMIT [Suspect]
     Active Substance: MACITENTAN
     Indication: PULMONARY ARTERIAL HYPERTENSION
     Dosage: 10 MG, QD
     Route: 048
     Dates: start: 20190529, end: 20190926
  2. OPSUMIT [Suspect]
     Active Substance: MACITENTAN
     Dosage: 10 UNK
     Route: 048
  3. TREPROSTINIL. [Suspect]
     Active Substance: TREPROSTINIL
     Indication: PRODUCT USED FOR UNKNOWN INDICATION
     Dosage: UNK
     Route: 065
  4. ADEMPAS [Concomitant]
     Active Substance: RIOCIGUAT
  5. TREPROSTINIL. [Suspect]
     Active Substance: TREPROSTINIL
     Dosage: UNK
     Route: 065
  6. TREPROSTINIL. [Suspect]
     Active Substance: TREPROSTINIL
     Dosage: 15 NG/KG, PER MIN
     Route: 065
  7. IMODIUM [Concomitant]
     Active Substance: LOPERAMIDE HYDROCHLORIDE

REACTIONS (18)
  - Headache [Unknown]
  - Dyspnoea exertional [Unknown]
  - Hepatic failure [Unknown]
  - Feeling of despair [Unknown]
  - Nausea [Unknown]
  - Abdominal pain [Unknown]
  - Chest pain [Unknown]
  - Varicose vein [Unknown]
  - Drug abuse [Unknown]
  - Diarrhoea [Recovering/Resolving]
  - Vascular pain [Unknown]
  - Dyspepsia [Recovering/Resolving]
  - Treatment noncompliance [Unknown]
  - Hospitalisation [Unknown]
  - Pain in extremity [Unknown]
  - Adverse event [Unknown]
  - Alcohol abuse [Unknown]
  - Dizziness [Unknown]

NARRATIVE: CASE EVENT DATE: 201906
